FAERS Safety Report 4833997-6 (Version None)
Quarter: 2005Q4

REPORT INFORMATION
  Report Type: 
  Country: None (occurrence: None)
  Receive Date: 20051122
  Receipt Date: 20051111
  Transmission Date: 20060501
  Serious: Yes (Hospitalization)
  Sender: FDA-Public Use
  Company Number: DE-AMGEN-UK157592

PATIENT
  Sex: Female

DRUGS (5)
  1. NEULASTA [Suspect]
     Indication: CHEMOTHERAPY
     Route: 058
  2. LEUPROLIDE ACETATE [Suspect]
     Route: 065
  3. TAXOTERE [Suspect]
     Route: 065
  4. DOXORUBICIN HYDROCHLORIDE [Suspect]
     Route: 065
  5. CYCLOPHOSPHAMIDE [Suspect]
     Route: 065

REACTIONS (7)
  - BACK PAIN [None]
  - BONE PAIN [None]
  - FEELING ABNORMAL [None]
  - HOT FLUSH [None]
  - NEUTROPENIA [None]
  - RESTLESSNESS [None]
  - SLEEP DISORDER [None]
